FAERS Safety Report 5486068-2 (Version None)
Quarter: 2007Q4

REPORT INFORMATION
  Report Type: 
  Country: None (occurrence: None)
  Receive Date: 20071015
  Receipt Date: 20071004
  Transmission Date: 20080405
  Serious: Yes (Hospitalization, Other)
  Sender: FDA-Public Use
  Company Number: US-PFIZER INC-2002058523

PATIENT
  Sex: Female
  Weight: 48.1 kg

DRUGS (5)
  1. ZOLOFT [Interacting]
     Indication: DEPRESSION
     Dosage: DAILY DOSE:25MG-FREQ:DAILY
     Route: 048
  2. ZOLOFT [Interacting]
     Indication: ANXIETY
  3. ZOLOFT [Interacting]
     Indication: PANIC ATTACK
  4. LEVOTHYROXINE SODIUM [Suspect]
     Indication: HYPOTHYROIDISM
     Dosage: DAILY DOSE:50MCG-FREQ:DAILY
     Route: 048
  5. CYPROHEPTADINE HCL [Interacting]
     Dosage: TEXT:UNKNOWN-FREQ:UNKNOWN
     Route: 065

REACTIONS (26)
  - ACNE [None]
  - AMENORRHOEA [None]
  - ANOREXIA [None]
  - ANXIETY [None]
  - CONSTIPATION [None]
  - DEPRESSION [None]
  - DIARRHOEA [None]
  - DISTURBANCE IN ATTENTION [None]
  - DRUG INEFFECTIVE [None]
  - DRUG INTERACTION [None]
  - DRUG LEVEL INCREASED [None]
  - DRY MOUTH [None]
  - GASTROINTESTINAL INFECTION [None]
  - HAEMORRHOIDS [None]
  - HYPOTHYROIDISM [None]
  - INSOMNIA [None]
  - IRRITABLE BOWEL SYNDROME [None]
  - MALAISE [None]
  - MENSTRUATION IRREGULAR [None]
  - METABOLIC DISORDER [None]
  - NERVOUSNESS [None]
  - PRURITUS [None]
  - TONGUE GEOGRAPHIC [None]
  - URTICARIA [None]
  - WEIGHT DECREASED [None]
  - WEIGHT INCREASED [None]
